FAERS Safety Report 13932879 (Version 13)
Quarter: 2019Q2

REPORT INFORMATION
  Report Type: Report from Study
  Country: FR (occurrence: FR)
  Receive Date: 20170904
  Receipt Date: 20190507
  Transmission Date: 20190711
  Serious: Yes (Hospitalization)
  Sender: FDA-Public Use
  Company Number: FR-PFIZER INC-2017375033

PATIENT
  Age: 63 Year
  Sex: Female
  Weight: 62 kg

DRUGS (7)
  1. LOVENOX [Concomitant]
     Active Substance: ENOXAPARIN SODIUM
     Dosage: 4000 IU ANTI-XA / 0.4 ML, AT ONE DOSAGE FORM (EVENING) UNTIL COMPLETE WANDERING
     Route: 058
  2. SUTENT [Suspect]
     Active Substance: SUNITINIB MALATE
     Dosage: 37.5 MG, CYCLIC (DAILY FOR 2 WEEKS ON, 1 WEEK OFF)
     Route: 048
     Dates: start: 20170912, end: 20171128
  3. LOPERAMIDE ARROW [Concomitant]
     Active Substance: LOPERAMIDE
     Dosage: 16 DF, AS NEEDED 6 TIMES A DAY
     Route: 048
  4. EUPRESSYL /00631801/ [Concomitant]
     Active Substance: URAPIDIL
     Dosage: 30 MG, 2X/DAY, 2 CAPSULES A DAY (1 IN MORNING, 1 IN EVENING)
     Route: 048
  5. SUTENT [Suspect]
     Active Substance: SUNITINIB MALATE
     Indication: METASTATIC RENAL CELL CARCINOMA
     Dosage: 50 MG, CYCLIC (DAILY IN THE MORNING, CYCLIC 4 WEEKS ON 2 WEEKS OFF)
     Route: 048
     Dates: start: 20170727, end: 20170812
  6. INIPOMP [Concomitant]
     Active Substance: PANTOPRAZOLE SODIUM
     Dosage: 1 DF, 1X/DAY IN THE EVENING
     Route: 048
  7. LOXEN /00639802/ [Concomitant]
     Active Substance: NICARDIPINE HYDROCHLORIDE
     Dosage: 2 DF, 1X/DAY (1 IN MORNING AND 1 IN EVENING)
     Route: 048

REACTIONS (16)
  - Renal failure [Recovering/Resolving]
  - Hypertension [Recovering/Resolving]
  - Asthenia [Recovered/Resolved]
  - Pyrexia [Recovered/Resolved]
  - General physical health deterioration [Recovered/Resolved]
  - Hypertension [Recovered/Resolved]
  - Proteinuria [Recovering/Resolving]
  - Jaundice [Recovered/Resolved]
  - Thrombocytopenia [Recovered/Resolved]
  - Vomiting [Recovered/Resolved]
  - Hepatocellular injury [Recovered/Resolved]
  - Headache [Recovered/Resolved]
  - Dry mouth [Recovered/Resolved]
  - Diarrhoea [Recovered/Resolved]
  - Vomiting [Recovered/Resolved]
  - Stomatitis [Recovered/Resolved]

NARRATIVE: CASE EVENT DATE: 20170804
